FAERS Safety Report 17631267 (Version 1)
Quarter: 2020Q2

REPORT INFORMATION
  Report Type: Spontaneous
  Country: US (occurrence: US)
  Receive Date: 20200406
  Receipt Date: 20200406
  Transmission Date: 20200713
  Serious: Yes (Other)
  Sender: FDA-Public Use
  Company Number: US-MYLANLABS-2020M1034862

PATIENT
  Age: 51 Year
  Sex: Male

DRUGS (5)
  1. CLADRIBINE. [Suspect]
     Active Substance: CLADRIBINE
     Indication: ACUTE MYELOID LEUKAEMIA
     Dosage: UNK, CLAG-M REGIMEN
     Route: 065
  2. CYTARABINE. [Suspect]
     Active Substance: CYTARABINE
     Indication: ACUTE MYELOID LEUKAEMIA
     Dosage: UNK, CLAG-M REGIMEN
     Route: 065
  3. MITOXANTRONE [Suspect]
     Active Substance: MITOXANTRONE HYDROCHLORIDE
     Indication: ACUTE MYELOID LEUKAEMIA
     Dosage: UNK,CLAG-M REGIMEN
     Route: 065
  4. FILGRASTIM [Suspect]
     Active Substance: FILGRASTIM
     Indication: ACUTE MYELOID LEUKAEMIA
     Dosage: UNK, CLAG-M REGIMEN
     Route: 065
  5. PONATINIB [Suspect]
     Active Substance: PONATINIB
     Indication: ACUTE MYELOID LEUKAEMIA
     Dosage: STARTED ON DAY 29 OF THE CLAG-M REGIMEN
     Route: 065

REACTIONS (1)
  - Drug ineffective [Unknown]
